FAERS Safety Report 4325550-8 (Version None)
Quarter: 2004Q1

REPORT INFORMATION
  Report Type: 
  Country: None (occurrence: None)
  Receive Date: 20040324
  Receipt Date: 20030825
  Transmission Date: 20041129
  Serious: Yes (Death)
  Sender: FDA-Public Use
  Company Number: BE-JNJFOC-20030805302

PATIENT
  Age: 57 Year
  Sex: Female

DRUGS (6)
  1. CISAPRIDE (CISAPRIDE) TABLETS [Suspect]
     Indication: IMPAIRED GASTRIC EMPTYING
     Dosage: ORAL;  10 MG, 4 IN 1 DAY, ORAL
     Route: 048
     Dates: start: 20020101
  2. CISAPRIDE (CISAPRIDE) TABLETS [Suspect]
     Indication: IMPAIRED GASTRIC EMPTYING
     Dosage: ORAL;  10 MG, 4 IN 1 DAY, ORAL
     Route: 048
     Dates: start: 20030502
  3. DURAGESIC [Concomitant]
  4. NEXIAM (ESOMEPRAZOLE) [Concomitant]
  5. PROVERA [Concomitant]
  6. NEO-RECORMON (EPOETIN BETA) [Concomitant]

REACTIONS (1)
  - BREAST CANCER FEMALE [None]
